FAERS Safety Report 10058297 (Version 1)
Quarter: 2014Q2

REPORT INFORMATION
  Report Type: Report from Study
  Country: ES (occurrence: ES)
  Receive Date: 20140404
  Receipt Date: 20140404
  Transmission Date: 20141212
  Serious: Yes (Life-Threatening, Hospitalization)
  Sender: FDA-Public Use
  Company Number: ES-JNJFOC-20140402514

PATIENT
  Age: 89 Year
  Sex: Male

DRUGS (6)
  1. XARELTO [Suspect]
     Indication: CEREBROVASCULAR ACCIDENT PROPHYLAXIS
     Route: 048
     Dates: start: 201304, end: 20140102
  2. XARELTO [Suspect]
     Indication: ATRIAL FIBRILLATION
     Route: 048
     Dates: start: 201304, end: 20140102
  3. ACETYLSALICYLIC ACID [Suspect]
     Indication: ISCHAEMIC CARDIOMYOPATHY
     Route: 048
     Dates: end: 20140102
  4. FUROSEMID [Suspect]
     Indication: RENAL FAILURE CHRONIC
     Route: 048
     Dates: end: 20140102
  5. ENALAPRIL [Suspect]
     Indication: HYPERTENSION
     Route: 048
     Dates: start: 201309
  6. NITROGLICERINA [Concomitant]
     Indication: ISCHAEMIC CARDIOMYOPATHY
     Route: 062
     Dates: end: 20140102

REACTIONS (2)
  - Renal failure acute [Recovering/Resolving]
  - Upper gastrointestinal haemorrhage [Recovered/Resolved]
